FAERS Safety Report 8617170-1 (Version None)
Quarter: 2012Q3

REPORT INFORMATION
  Report Type: 
  Country: None (occurrence: None)
  Receive Date: 20120823
  Receipt Date: 20120817
  Transmission Date: 20120928
  Serious: Yes (Other)
  Sender: FDA-Public Use
  Company Number: CN-ABBOTT-12P-035-0967576-00

PATIENT
  Sex: Male

DRUGS (3)
  1. VALPROIC ACID SYRUP [Suspect]
     Indication: EPILEPSY
     Route: 048
     Dates: start: 20110501, end: 20111101
  2. VALPROIC ACID SYRUP [Suspect]
     Route: 048
     Dates: start: 20120101
  3. VALPROIC ACID SYRUP [Suspect]
     Route: 048
     Dates: start: 20120701

REACTIONS (5)
  - PRODUCT COUNTERFEIT [None]
  - LOSS OF CONSCIOUSNESS [None]
  - EYE MOVEMENT DISORDER [None]
  - EPILEPSY [None]
  - CONVULSION [None]
